FAERS Safety Report 8937107 (Version 1)
Quarter: 2012Q4

REPORT INFORMATION
  Report Type: Spontaneous
  Country: US (occurrence: None)
  Receive Date: 20121128
  Receipt Date: 20121128
  Transmission Date: 20130627
  Serious: Yes (Life-Threatening, Hospitalization, Disabling, Other)
  Sender: FDA-Public Use
  Company Number: None

PATIENT
  Age: 39 Year
  Sex: Male
  Weight: 102.06 kg

DRUGS (1)
  1. MEFLOQUINE UNKNOWN UNKNOWN [Suspect]
     Dosage: daily po
     Route: 048
     Dates: start: 20081115, end: 20091114

REACTIONS (3)
  - Suicide attempt [None]
  - Drug ineffective [None]
  - Hallucination, auditory [None]
